FAERS Safety Report 24281129 (Version 2)
Quarter: 2024Q4

REPORT INFORMATION
  Report Type: Spontaneous
  Country: US (occurrence: US)
  Receive Date: 20240904
  Receipt Date: 20241126
  Transmission Date: 20250115
  Serious: Yes (Hospitalization, Other)
  Sender: PROCTER AND GAMBLE
  Company Number: US-PROCTER+GAMBLE-PH24006672

PATIENT
  Age: 17 Year
  Sex: Female

DRUGS (1)
  1. VICKS ZZZQUIL NIGHTTIME SLEEP-AID [Suspect]
     Active Substance: DIPHENHYDRAMINE HYDROCHLORIDE
     Indication: Drug abuse
     Dosage: 73 CAPLET, 1 ONLY
     Route: 048
     Dates: start: 20240819, end: 20240819

REACTIONS (6)
  - Hallucination [Unknown]
  - Mydriasis [Unknown]
  - Disorientation [Unknown]
  - Tachycardia [Recovered/Resolved]
  - Drug abuse [Unknown]
  - Overdose [Unknown]

NARRATIVE: CASE EVENT DATE: 20240819
